FAERS Safety Report 5126281-7 (Version None)
Quarter: 2006Q3

REPORT INFORMATION
  Report Type: 
  Country: None (occurrence: None)
  Receive Date: 20060825
  Receipt Date: 20050720
  Transmission Date: 20061208
  Serious: Yes (Disabling, Other)
  Sender: FDA-Public Use
  Company Number: 2005-0008360

PATIENT
  Age: 79 Year
  Sex: Male

DRUGS (2)
  1. VISTIDE [Suspect]
     Indication: LYMPHOMA
     Dosage: 1 IN 1 WK, OTHER
     Dates: start: 20041101, end: 20041201
  2. PROBENECID [Concomitant]

REACTIONS (1)
  - UVEITIS [None]
